FAERS Safety Report 22171015 (Version 1)
Quarter: 2023Q2

REPORT INFORMATION
  Report Type: Spontaneous
  Country: US (occurrence: US)
  Receive Date: 20230404
  Receipt Date: 20230404
  Transmission Date: 20230721
  Serious: Yes (Other)
  Sender: FDA-Public Use
  Company Number: US-MLMSERVICE-20230317-4173528-1

PATIENT
  Age: 1 Decade
  Sex: Female

DRUGS (13)
  1. METHYLPREDNISOLONE [Suspect]
     Active Substance: METHYLPREDNISOLONE
     Indication: Cytomegalovirus infection
     Dosage: UNK
     Route: 065
     Dates: start: 201701, end: 2017
  2. METHYLPREDNISOLONE [Suspect]
     Active Substance: METHYLPREDNISOLONE
     Indication: Haemophagocytic lymphohistiocytosis
     Dosage: 30 MILLIGRAM/KILOGRAM
     Route: 042
     Dates: start: 201712, end: 2017
  3. METHYLPREDNISOLONE [Suspect]
     Active Substance: METHYLPREDNISOLONE
     Indication: Still^s disease
     Dosage: PULSE
     Route: 065
     Dates: start: 2018
  4. METHYLPREDNISOLONE [Suspect]
     Active Substance: METHYLPREDNISOLONE
     Dosage: PULSE
     Route: 065
     Dates: start: 201901
  5. PREDNISOLONE [Suspect]
     Active Substance: PREDNISOLONE
     Indication: Still^s disease
     Dosage: 2 MILLIGRAM/KILOGRAM, ONCE A DAY
     Route: 048
     Dates: start: 201712, end: 201806
  6. PREDNISOLONE [Suspect]
     Active Substance: PREDNISOLONE
     Indication: Haemophagocytic lymphohistiocytosis
     Dosage: UNK
     Route: 048
     Dates: start: 201806, end: 201901
  7. PREDNISOLONE [Suspect]
     Active Substance: PREDNISOLONE
     Indication: Cytomegalovirus infection
     Dosage: 2 MILLIGRAM/KILOGRAM, ONCE A DAY
     Route: 048
     Dates: start: 201901
  8. PREDNISOLONE [Suspect]
     Active Substance: PREDNISOLONE
     Dosage: ANOTHER ATTEMPT TO WEAN
     Route: 048
     Dates: start: 201901, end: 201901
  9. ANAKINRA [Concomitant]
     Active Substance: ANAKINRA
     Indication: Still^s disease
     Dosage: 2 MILLIGRAM/KILOGRAM, ONCE A DAY
     Route: 065
     Dates: start: 201806, end: 201806
  10. ANAKINRA [Concomitant]
     Active Substance: ANAKINRA
     Indication: Haemophagocytic lymphohistiocytosis
     Dosage: 4 MILLIGRAM/KILOGRAM, ONCE A DAY
     Route: 065
     Dates: start: 201901
  11. ANAKINRA [Concomitant]
     Active Substance: ANAKINRA
     Dosage: 3 MILLIGRAM/KILOGRAM, ONCE A DAY
     Route: 065
     Dates: start: 201806, end: 201901
  12. METHOTREXATE [Concomitant]
     Active Substance: METHOTREXATE
     Indication: Still^s disease
     Dosage: 10 MILLIGRAM, EVERY WEEK
     Route: 058
     Dates: start: 201901
  13. METHOTREXATE [Concomitant]
     Active Substance: METHOTREXATE
     Indication: Haemophagocytic lymphohistiocytosis

REACTIONS (5)
  - Cushingoid [Unknown]
  - Spinal fracture [Unknown]
  - Joint dislocation [Unknown]
  - Cataract [Unknown]
  - Osteopenia [Unknown]
